FAERS Safety Report 14284384 (Version 1)
Quarter: 2017Q4

REPORT INFORMATION
  Report Type: Spontaneous
  Country: US (occurrence: US)
  Receive Date: 20171214
  Receipt Date: 20171214
  Transmission Date: 20180321
  Serious: No
  Sender: FDA-Public Use
  Company Number: US-009507513-1712USA003297

PATIENT
  Age: 24 Year
  Sex: Male

DRUGS (5)
  1. CUBICIN [Suspect]
     Active Substance: DAPTOMYCIN
     Indication: ROTATOR CUFF SYNDROME
     Route: 042
  2. CIPROFLOXACIN. [Concomitant]
     Active Substance: CIPROFLOXACIN
  3. CUBICIN [Suspect]
     Active Substance: DAPTOMYCIN
     Indication: CHONDROLYSIS
  4. CUBICIN [Suspect]
     Active Substance: DAPTOMYCIN
     Indication: TENDON RUPTURE
  5. VANCOMYCIN [Concomitant]
     Active Substance: VANCOMYCIN

REACTIONS (1)
  - Product use in unapproved indication [Unknown]
